FAERS Safety Report 18639003 (Version 1)
Quarter: 2020Q4

REPORT INFORMATION
  Report Type: Spontaneous
  Country: JP (occurrence: JP)
  Receive Date: 20201218
  Receipt Date: 20201218
  Transmission Date: 20210114
  Serious: Yes (Death, Hospitalization, Other)
  Sender: FDA-Public Use
  Company Number: JP-JAZZ-2020-JP-017251

PATIENT
  Age: 63 Year
  Sex: Male
  Weight: 68.9 kg

DRUGS (1)
  1. DEFITELIO [Suspect]
     Active Substance: DEFIBROTIDE SODIUM
     Indication: VENOOCCLUSIVE LIVER DISEASE
     Dosage: 25 MILLIGRAM/KILOGRAM/DAY
     Route: 042
     Dates: start: 20200609, end: 20200706

REACTIONS (4)
  - Cystitis haemorrhagic [Recovering/Resolving]
  - Multiple organ dysfunction syndrome [Fatal]
  - BK virus infection [Unknown]
  - Off label use [Unknown]

NARRATIVE: CASE EVENT DATE: 2020
